FAERS Safety Report 14495081 (Version 1)
Quarter: 2018Q1

REPORT INFORMATION
  Report Type: Report from Study
  Country: US (occurrence: US)
  Receive Date: 20180206
  Receipt Date: 20180206
  Transmission Date: 20180509
  Serious: No
  Sender: FDA-Public Use
  Company Number: PHEH2018US004085

PATIENT
  Age: 33 Year
  Sex: Female

DRUGS (2)
  1. TOPAMAX [Concomitant]
     Active Substance: TOPIRAMATE
     Indication: HEADACHE
     Route: 065
  2. GILENYA [Suspect]
     Active Substance: FINGOLIMOD HYDROCHLORIDE
     Indication: PRODUCT USED FOR UNKNOWN INDICATION
     Dosage: UNK
     Route: 065
     Dates: start: 20170717

REACTIONS (4)
  - Dyskinesia [Unknown]
  - Fatigue [Unknown]
  - Hypokinesia [Unknown]
  - Stress [Unknown]

NARRATIVE: CASE EVENT DATE: 20170724
